FAERS Safety Report 24568951 (Version 1)
Quarter: 2024Q4

REPORT INFORMATION
  Report Type: Report from Study
  Country: US (occurrence: US)
  Receive Date: 20241031
  Receipt Date: 20241031
  Transmission Date: 20250115
  Serious: Yes (Other)
  Sender: UCB
  Company Number: US-UCBSA-2024055463

PATIENT
  Age: 7 Year
  Sex: Male
  Weight: 22.1 kg

DRUGS (1)
  1. FINTEPLA [Suspect]
     Active Substance: FENFLURAMINE
     Indication: Product used for unknown indication
     Dosage: 0.66 MILLIGRAM/KILOGRAM, ONCE DAILY (QD) (TOTAL - 14.5MG))

REACTIONS (3)
  - Pulmonary valve incompetence [Unknown]
  - Tricuspid valve incompetence [Unknown]
  - Right ventricular dilatation [Unknown]

NARRATIVE: CASE EVENT DATE: 20240822
